FAERS Safety Report 25680879 (Version 1)
Quarter: 2025Q3

REPORT INFORMATION
  Report Type: Spontaneous
  Country: CA (occurrence: CA)
  Receive Date: 20250814
  Receipt Date: 20250814
  Transmission Date: 20251021
  Serious: Yes (Other)
  Sender: STRIDES
  Company Number: CA-STRIDES ARCOLAB LIMITED-2025SP010174

PATIENT
  Age: 77 Year
  Sex: Female

DRUGS (4)
  1. FUROSEMIDE [Suspect]
     Active Substance: FUROSEMIDE
     Indication: Lymphoedema
     Route: 048
  2. FUROSEMIDE [Suspect]
     Active Substance: FUROSEMIDE
     Indication: Ascites
     Route: 048
  3. OCTREOTIDE [Concomitant]
     Active Substance: OCTREOTIDE
     Indication: Ascites
     Route: 030
     Dates: start: 202112, end: 2022
  4. OCTREOTIDE [Concomitant]
     Active Substance: OCTREOTIDE
     Indication: Lymphoedema

REACTIONS (3)
  - Condition aggravated [Recovering/Resolving]
  - Pleural effusion [Unknown]
  - Off label use [Unknown]
